FAERS Safety Report 23482955 (Version 1)
Quarter: 2024Q1

REPORT INFORMATION
  Report Type: Spontaneous
  Country: US (occurrence: None)
  Receive Date: 20240204
  Receipt Date: 20240204
  Transmission Date: 20240410
  Serious: No
  Sender: FDA-Public Use
  Company Number: None

PATIENT
  Sex: 0

DRUGS (1)
  1. AXICABTAGENE CILOLEUCEL [Suspect]
     Active Substance: AXICABTAGENE CILOLEUCEL

REACTIONS (13)
  - Cytokine release syndrome [None]
  - Infusion related reaction [None]
  - Blood pressure decreased [None]
  - Pneumonia [None]
  - Parkinson^s disease [None]
  - Aphasia [None]
  - Cardio-respiratory arrest [None]
  - Orthostatic hypotension [None]
  - Chest pain [None]
  - Retroperitoneal haematoma [None]
  - Haematoma muscle [None]
  - Neurotoxicity [None]
  - Cerebrovascular accident [None]

NARRATIVE: CASE EVENT DATE: 20230919
